FAERS Safety Report 16758743 (Version 1)
Quarter: 2019Q3

REPORT INFORMATION
  Report Type: Spontaneous
  Country: JP (occurrence: JP)
  Receive Date: 20190830
  Receipt Date: 20190830
  Transmission Date: 20191005
  Serious: Yes (Death)
  Sender: FDA-Public Use
  Company Number: JP-TEVA-2019-JP-1102839

PATIENT
  Age: 85 Year
  Sex: Female

DRUGS (4)
  1. TRERIEF [Concomitant]
     Active Substance: ZONISAMIDE
  2. NEODOPASTON [Concomitant]
     Active Substance: CARBIDOPA\LEVODOPA
  3. AZILECT [Suspect]
     Active Substance: RASAGILINE MESYLATE
     Dosage: 1 MILLIGRAM DAILY;
     Route: 048
     Dates: start: 20190729
  4. AZILECT [Suspect]
     Active Substance: RASAGILINE MESYLATE
     Indication: PARKINSON^S DISEASE
     Dosage: .5 MILLIGRAM DAILY;
     Route: 048
     Dates: start: 20190701

REACTIONS (1)
  - Fall [Fatal]
